FAERS Safety Report 5647051-7 (Version None)
Quarter: 2008Q1

REPORT INFORMATION
  Report Type: 
  Country: None (occurrence: None)
  Receive Date: 20080303
  Receipt Date: 20080226
  Transmission Date: 20080703
  Serious: Yes (Death, Life-Threatening)
  Sender: FDA-Public Use
  Company Number: DE-JNJFOC-20080205958

PATIENT
  Age: 31 Year
  Sex: Male

DRUGS (44)
  1. TAVANIC [Suspect]
     Indication: ARTHRITIS
     Route: 048
  2. TRAMAL LONG [Suspect]
     Route: 048
  3. TRAMAL LONG [Suspect]
     Indication: PAIN
     Route: 048
  4. RULID [Suspect]
     Indication: PYREXIA
     Route: 048
  5. VERGENTAN [Suspect]
     Indication: NAUSEA
     Route: 042
  6. FRAXIPARIN [Suspect]
     Indication: THROMBOSIS PROPHYLAXIS
     Route: 058
  7. CLINDAMYCIN HCL [Suspect]
     Indication: ARTHRITIS
     Route: 048
  8. NOVALGIN [Suspect]
     Indication: PAIN
     Route: 042
  9. PANTOZOL [Suspect]
     Route: 048
  10. PANTOZOL [Suspect]
     Indication: GASTROINTESTINAL DISORDER THERAPY
     Dosage: 1-0-1,0-0-1
     Route: 048
  11. DECORTIN [Suspect]
     Route: 048
  12. DECORTIN [Suspect]
     Route: 048
  13. DECORTIN [Suspect]
     Indication: ACUTE MYELOID LEUKAEMIA
     Route: 048
  14. URSO FALK [Suspect]
     Indication: GASTROOESOPHAGEAL REFLUX DISEASE
     Route: 048
  15. EUSAPRIM FORTE [Suspect]
     Indication: ARTHRITIS
     Route: 065
  16. BENURON [Suspect]
     Route: 065
  17. BENURON [Suspect]
     Route: 065
  18. BENURON [Suspect]
     Indication: PYREXIA
     Route: 065
  19. BENURON [Suspect]
     Route: 048
  20. PASPERTIN [Suspect]
     Route: 048
  21. PASPERTIN [Suspect]
     Route: 048
  22. PASPERTIN [Suspect]
     Route: 048
  23. PASPERTIN [Suspect]
     Route: 048
  24. PASPERTIN [Suspect]
     Indication: NAUSEA
     Route: 048
  25. DORMICUM [Suspect]
     Indication: ANXIETY
     Route: 048
  26. DORMICUM [Suspect]
     Indication: RESTLESSNESS
     Route: 048
  27. TRAMAL [Suspect]
     Indication: PAIN
     Route: 042
  28. RIFAMPICIN [Suspect]
     Indication: SEPSIS
     Route: 042
  29. DIFLUCAN [Concomitant]
     Route: 048
  30. DIFLUCAN [Concomitant]
     Indication: ORAL CANDIDIASIS
     Route: 048
  31. AMPHO-MORONAL [Concomitant]
     Route: 048
  32. KALIUM DURILES [Concomitant]
     Route: 048
  33. KALIUM DURILES [Concomitant]
     Indication: MINERAL SUPPLEMENTATION
     Route: 048
  34. METOPROLOL SUCCINATE [Concomitant]
     Route: 048
  35. METOPROLOL SUCCINATE [Concomitant]
     Indication: HYPERTENSION
     Route: 048
  36. CALCIUM CARBONATE [Concomitant]
     Indication: MINERAL SUPPLEMENTATION
     Route: 065
  37. OTRIVEN [Concomitant]
     Indication: NASAL CONGESTION
     Route: 061
  38. PLATELETS [Concomitant]
     Route: 042
  39. SODIUM CHLORIDE INJ [Concomitant]
     Indication: FLUID REPLACEMENT
     Route: 042
  40. GLUCOSE [Concomitant]
     Route: 042
  41. THOMAEJONIN [Concomitant]
     Indication: FLUID REPLACEMENT
     Route: 042
  42. MERONEM [Concomitant]
     Indication: INFECTION
     Route: 042
  43. DRIDASE [Concomitant]
     Route: 048
  44. DRIDASE [Concomitant]
     Indication: GENITAL PAIN
     Route: 048

REACTIONS (1)
  - TOXIC EPIDERMAL NECROLYSIS [None]
